FAERS Safety Report 6475321-1 (Version None)
Quarter: 2009Q4

REPORT INFORMATION
  Report Type: 
  Country: None (occurrence: None)
  Receive Date: 20091204
  Receipt Date: 20090408
  Transmission Date: 20100525
  Serious: Yes (Hospitalization)
  Sender: FDA-Public Use
  Company Number: FR-ELI_LILLY_AND_COMPANY-FR200904001784

PATIENT
  Sex: Female

DRUGS (11)
  1. RALOXIFENE HYDROCHLORIDE [Suspect]
     Dosage: 60 MG, DAILY (1/D)
     Route: 065
  2. REVLIMID [Concomitant]
     Dosage: 1 D/F, DAILY (1/D)
     Route: 048
     Dates: start: 20070101
  3. SKENAN [Concomitant]
     Dosage: 30 MG, DAILY (1/D)
     Route: 048
  4. PARACETAMOL [Concomitant]
     Dosage: 2000 MG, UNKNOWN
     Route: 065
  5. TEMESTA [Concomitant]
     Dosage: 2.5 MG, DAILY (1/D)
     Route: 048
  6. FURSEMIDE [Concomitant]
     Dosage: 20 MG, DAILY (1/D)
     Route: 048
  7. ZYPREXA [Concomitant]
     Dosage: 7.5 MG, DAILY (1/D)
     Route: 048
  8. ZELITREX [Concomitant]
     Dosage: 500 MG, DAILY (1/D)
     Route: 048
  9. SPIRIVA [Concomitant]
     Dosage: 1 D/F, DAILY (1/D)
     Route: 065
  10. NOCTAMID [Concomitant]
     Dosage: 2 MG, DAILY (1/D)
     Route: 048
  11. PREVISCAN [Concomitant]
     Indication: EMBOLISM
     Dosage: 0.75 (UNITS UNKNOWN), DAILY (1/D)
     Route: 048
     Dates: start: 19980101, end: 20081119

REACTIONS (3)
  - DRUG INTERACTION [None]
  - INTERNATIONAL NORMALISED RATIO INCREASED [None]
  - OVERDOSE [None]
